FAERS Safety Report 9867659 (Version 2)
Quarter: 2014Q1

REPORT INFORMATION
  Report Type: Report from Study
  Country: DE (occurrence: DE)
  Receive Date: 20140204
  Receipt Date: 20140204
  Transmission Date: 20141002
  Serious: Yes (Hospitalization)
  Sender: FDA-Public Use
  Company Number: DE-SANOFI-AVENTIS-2010SA054955

PATIENT
  Age: 55 Year
  Sex: Male
  Weight: 79.1 kg

DRUGS (12)
  1. TERIFLUNOMIDE [Suspect]
     Indication: MULTIPLE SCLEROSIS RELAPSE
     Dosage: DOSE:1 UNIT(S)
     Route: 048
     Dates: start: 20071011
  2. LORZAAR [Concomitant]
     Route: 065
     Dates: start: 200202
  3. ACETYLSALICYLIC ACID [Concomitant]
     Route: 065
     Dates: start: 200202
  4. PAROXETIN [Concomitant]
     Indication: DEPRESSION
     Route: 048
     Dates: start: 20070322
  5. ZOPICLONE [Concomitant]
     Route: 065
     Dates: start: 20070630
  6. NITRENDIPINE [Concomitant]
     Route: 065
     Dates: start: 200701
  7. SIRDALUD [Concomitant]
     Route: 048
     Dates: start: 201004
  8. LACTULOSE [Concomitant]
     Indication: CONSTIPATION
     Route: 048
     Dates: start: 20100308
  9. LYRICA [Concomitant]
     Indication: NEURALGIA
     Route: 048
     Dates: start: 201001
  10. GABAPENTIN [Concomitant]
     Route: 065
     Dates: start: 20100106
  11. UNKNOWDRUG [Concomitant]
  12. CARBAMAZEPINE [Concomitant]

REACTIONS (2)
  - Perirectal abscess [Recovered/Resolved]
  - Anal abscess [Recovered/Resolved]
